FAERS Safety Report 17618417 (Version 1)
Quarter: 2020Q2

REPORT INFORMATION
  Report Type: Spontaneous
  Country: US (occurrence: US)
  Receive Date: 20200402
  Receipt Date: 20200402
  Transmission Date: 20200713
  Serious: No
  Sender: FDA-Public Use
  Company Number: US-ROCHE-2298140

PATIENT
  Sex: Male

DRUGS (2)
  1. ERIVEDGE [Suspect]
     Active Substance: VISMODEGIB
     Indication: BASAL CELL CARCINOMA
     Route: 048
  2. ERIVEDGE [Suspect]
     Active Substance: VISMODEGIB
     Indication: CHORIORETINAL ATROPHY

REACTIONS (6)
  - Muscle spasms [Unknown]
  - Dizziness [Unknown]
  - Stomatitis [Unknown]
  - Taste disorder [Unknown]
  - Constipation [Unknown]
  - Nausea [Unknown]
